FAERS Safety Report 8499449-X (Version None)
Quarter: 2012Q3

REPORT INFORMATION
  Report Type: 
  Country: None (occurrence: None)
  Receive Date: 20120710
  Receipt Date: 20120628
  Transmission Date: 20120928
  Serious: Yes (Hospitalization)
  Sender: FDA-Public Use
  Company Number: US-JNJFOC-20120614759

PATIENT
  Age: 60 Year
  Sex: Male
  Weight: 148.33 kg

DRUGS (11)
  1. XARELTO [Suspect]
     Indication: ATRIAL FIBRILLATION
     Route: 048
  2. ATENOLOL [Concomitant]
  3. VENTOLIN [Concomitant]
     Route: 055
  4. XARELTO [Suspect]
     Indication: CEREBROVASCULAR ACCIDENT PROPHYLAXIS
     Route: 048
  5. FLONASE [Concomitant]
  6. MEDROL [Concomitant]
  7. TRAMADOL HCL [Concomitant]
  8. FLEXERIL [Concomitant]
     Route: 048
  9. TESTOSTERONE [Concomitant]
  10. SINGULAIR [Concomitant]
  11. NONSTEROIDAL ANTIINFLAMMATORY DRUGS [Suspect]
     Indication: PRODUCT USED FOR UNKNOWN INDICATION

REACTIONS (1)
  - UPPER GASTROINTESTINAL HAEMORRHAGE [None]
